FAERS Safety Report 21335981 (Version 1)
Quarter: 2022Q3

REPORT INFORMATION
  Report Type: Spontaneous
  Country: CN (occurrence: CN)
  Receive Date: 20220915
  Receipt Date: 20220915
  Transmission Date: 20221026
  Serious: Yes (Life-Threatening, Other)
  Sender: FDA-Public Use
  Company Number: None

PATIENT
  Age: 68 Year
  Sex: Male

DRUGS (8)
  1. CYCLOPHOSPHAMIDE [Suspect]
     Active Substance: CYCLOPHOSPHAMIDE
     Indication: Diffuse large B-cell lymphoma stage I
     Dosage: 1.16G, QD, DILUTED WITH 0.9% SODIUM CHLORIDE INJECTION 50 ML, (R-CHOP REGIMEN)
     Route: 041
     Dates: start: 20220804, end: 20220804
  2. SODIUM CHLORIDE [Suspect]
     Active Substance: SODIUM CHLORIDE
     Indication: Medication dilution
     Dosage: 50ML, QD, DILUTED IN CYCLOPHOSPHAMIDE 1.16G, R-CHOP REGIMEN
     Route: 041
     Dates: start: 20220804, end: 20220804
  3. SODIUM CHLORIDE [Suspect]
     Active Substance: SODIUM CHLORIDE
     Dosage: 500ML, QD, DILUTED IN RITUXIMAB INJECTION 0.5G, R-CHOP REGIMEN
     Route: 041
     Dates: start: 20220803, end: 20220803
  4. SODIUM CHLORIDE [Suspect]
     Active Substance: SODIUM CHLORIDE
     Dosage: 100ML, QD, DILUTED IN EPIRUBICIN HYDROCHLORIDE 116MG, R-CHOP REGIMEN
     Route: 041
     Dates: start: 20220804, end: 20220804
  5. RITUXIMAB [Suspect]
     Active Substance: RITUXIMAB
     Indication: Diffuse large B-cell lymphoma stage I
     Dosage: 0.5G, QD, DILUTED WITH 0.9% SODIUM CHLORIDE INJECTION 500ML, R-CHOP REGIMEN
     Route: 041
     Dates: start: 20220803, end: 20220803
  6. EPIRUBICIN HYDROCHLORIDE [Suspect]
     Active Substance: EPIRUBICIN HYDROCHLORIDE
     Indication: Diffuse large B-cell lymphoma stage I
     Dosage: 116MG, QD, DILUTED WITH 0.9% SODIUM CHLORIDE INJECTION 100ML, (R-CHOP REGIMEN)
     Route: 041
     Dates: start: 20220804, end: 20220804
  7. VINCRISTINE [Suspect]
     Active Substance: VINCRISTINE
     Indication: Diffuse large B-cell lymphoma stage I
     Dosage: (R-CHOP REGIMEN)
     Route: 065
     Dates: start: 20220803
  8. PREDNISONE [Suspect]
     Active Substance: PREDNISONE
     Indication: Diffuse large B-cell lymphoma stage I
     Dosage: (R-CHOP REGIMEN)
     Route: 065
     Dates: start: 20220803

REACTIONS (3)
  - Myelosuppression [Not Recovered/Not Resolved]
  - Agranulocytosis [Not Recovered/Not Resolved]
  - Pyrexia [Not Recovered/Not Resolved]

NARRATIVE: CASE EVENT DATE: 20220812
